FAERS Safety Report 24384782 (Version 1)
Quarter: 2024Q4

REPORT INFORMATION
  Report Type: Spontaneous
  Country: ES (occurrence: ES)
  Receive Date: 20241001
  Receipt Date: 20241001
  Transmission Date: 20250114
  Serious: Yes (Hospitalization)
  Sender: STERISCIENCE PTE
  Company Number: ES-STERISCIENCE B.V.-2024-ST-001512

PATIENT
  Age: 78 Year

DRUGS (19)
  1. VANCOMYCIN [Interacting]
     Active Substance: VANCOMYCIN
     Indication: Biliary sepsis
     Dosage: 1 GRAM
     Route: 042
     Dates: start: 20230202, end: 20230210
  2. VANCOMYCIN [Interacting]
     Active Substance: VANCOMYCIN
     Dosage: 0.75 GRAM
     Route: 042
     Dates: start: 20230210, end: 20230212
  3. VANCOMYCIN [Interacting]
     Active Substance: VANCOMYCIN
     Dosage: 0.5 GRAM
     Route: 042
     Dates: start: 20230212, end: 20230216
  4. VANCOMYCIN [Interacting]
     Active Substance: VANCOMYCIN
     Dosage: 1 GRAM
     Route: 042
     Dates: start: 20230216, end: 20230221
  5. VANCOMYCIN [Interacting]
     Active Substance: VANCOMYCIN
     Dosage: 0.75 GRAM
     Route: 042
     Dates: start: 20230221, end: 20230223
  6. FLUCONAZOLE [Interacting]
     Active Substance: FLUCONAZOLE
     Indication: Biliary sepsis
     Dosage: 400 MILLIGRAM, SINGLE DOSE
     Route: 042
     Dates: start: 20230206, end: 20230206
  7. FLUCONAZOLE [Interacting]
     Active Substance: FLUCONAZOLE
     Dosage: 200 MILLIGRAM
     Route: 042
     Dates: start: 20230207, end: 20230217
  8. ATORVASTATIN [Concomitant]
     Active Substance: ATORVASTATIN
     Indication: Dyslipidaemia
     Dosage: 10 MILLIGRAM, QD 24 HOURS
     Route: 065
  9. MEROPENEM [Concomitant]
     Active Substance: MEROPENEM
     Indication: Evidence based treatment
     Dosage: 1 GRAM, Q8H
     Route: 065
     Dates: start: 20230113, end: 20230223
  10. MEROPENEM [Concomitant]
     Active Substance: MEROPENEM
     Indication: Biliary sepsis
  11. ENOXAPARIN [Concomitant]
     Active Substance: ENOXAPARIN
     Indication: Product used for unknown indication
     Dosage: 40 MILLIGRAM
     Dates: start: 202302
  12. OMEPRAZOLE [Concomitant]
     Active Substance: OMEPRAZOLE
     Indication: Product used for unknown indication
     Dosage: 40 MILLIGRAM, BID, 12H
     Route: 042
     Dates: start: 202302, end: 202302
  13. OMEPRAZOLE [Concomitant]
     Active Substance: OMEPRAZOLE
     Dosage: 20 MILLIGRAM, QH, 24H
     Route: 048
     Dates: start: 202302
  14. METAMIZOLE [Concomitant]
     Active Substance: METAMIZOLE
     Indication: Product used for unknown indication
     Dosage: 2 GRAM, Q8H
     Route: 042
     Dates: start: 202302
  15. DEXKETOPROFEN [Concomitant]
     Active Substance: DEXKETOPROFEN
     Indication: Product used for unknown indication
     Dosage: 25 MILLIGRAM, Q8H AS NEEDED
     Route: 048
     Dates: start: 202302
  16. LORAZEPAM [Concomitant]
     Active Substance: LORAZEPAM
     Indication: Product used for unknown indication
     Dosage: 1 MILLIGRAM, QD, 24 H, AS NEEDED
     Route: 048
     Dates: start: 202302
  17. ACETAMINOPHEN [Concomitant]
     Active Substance: ACETAMINOPHEN
     Indication: Product used for unknown indication
     Dosage: 1 GRAM, Q8H
     Route: 042
     Dates: start: 202302, end: 202302
  18. ACETAMINOPHEN [Concomitant]
     Active Substance: ACETAMINOPHEN
     Dosage: 1 GRAM, QD, 24H
     Route: 048
     Dates: start: 202302
  19. ACETAMINOPHEN [Concomitant]
     Active Substance: ACETAMINOPHEN
     Dosage: 1 GRAM, QD, 24H
     Route: 048
     Dates: start: 202302

REACTIONS (3)
  - Drug half-life increased [Recovering/Resolving]
  - Drug level increased [Recovering/Resolving]
  - Drug interaction [Recovering/Resolving]

NARRATIVE: CASE EVENT DATE: 20230207
